FAERS Safety Report 24337613 (Version 2)
Quarter: 2024Q4

REPORT INFORMATION
  Report Type: Report from Study
  Country: US (occurrence: US)
  Receive Date: 20240919
  Receipt Date: 20241213
  Transmission Date: 20250115
  Serious: Yes (Other)
  Sender: ABBVIE
  Company Number: US-ABBVIE-5927078

PATIENT
  Age: 67 Year
  Sex: Female

DRUGS (1)
  1. HUMIRA [Suspect]
     Active Substance: ADALIMUMAB
     Indication: Crohn^s disease
     Route: 058
     Dates: start: 20240307

REACTIONS (8)
  - Generalised tonic-clonic seizure [Recovering/Resolving]
  - Hypophagia [Unknown]
  - Diarrhoea [Recovering/Resolving]
  - Frustration tolerance decreased [Unknown]
  - Depression [Unknown]
  - Upper limb fracture [Recovering/Resolving]
  - Pain [Recovering/Resolving]
  - Weight decreased [Recovered/Resolved]

NARRATIVE: CASE EVENT DATE: 20240101
